FAERS Safety Report 6718356-3 (Version None)
Quarter: 2010Q2

REPORT INFORMATION
  Report Type: 
  Country: None (occurrence: None)
  Receive Date: 20100504
  Receipt Date: 20100421
  Transmission Date: 20101027
  Serious: Yes (Hospitalization)
  Sender: FDA-Public Use
  Company Number: 7002218

PATIENT
  Age: 32 Year
  Sex: Female

DRUGS (1)
  1. REBIF [Suspect]
     Indication: MULTIPLE SCLEROSIS
     Dosage: 44 MCG, 3 IN 1 WK; SUBCUTANEOUS
     Route: 058
     Dates: start: 20080101

REACTIONS (7)
  - APHASIA [None]
  - CONFUSIONAL STATE [None]
  - DEHYDRATION [None]
  - DENTAL CARIES [None]
  - INJECTION SITE MASS [None]
  - KIDNEY INFECTION [None]
  - MULTIPLE SCLEROSIS RELAPSE [None]
